FAERS Safety Report 10931676 (Version 2)
Quarter: 2015Q1

REPORT INFORMATION
  Report Type: Spontaneous
  Country: CA (occurrence: CA)
  Receive Date: 20150319
  Receipt Date: 20150330
  Transmission Date: 20150721
  Serious: Yes (Other)
  Sender: FDA-Public Use
  Company Number: CA-TEVA-548154USA

PATIENT
  Age: 55 Year
  Sex: Female

DRUGS (1)
  1. AZILECT [Suspect]
     Active Substance: RASAGILINE MESYLATE
     Indication: PARKINSONISM
     Dosage: 1 MILLIGRAM DAILY;
     Route: 048
     Dates: start: 201310

REACTIONS (6)
  - Systemic lupus erythematosus [Unknown]
  - Dermatitis contact [Unknown]
  - Lichenoid keratosis [Not Recovered/Not Resolved]
  - Rash erythematous [Unknown]
  - Skin disorder [Unknown]
  - Skin hyperpigmentation [Unknown]

NARRATIVE: CASE EVENT DATE: 2014
